FAERS Safety Report 12076643 (Version 2)
Quarter: 2016Q1

REPORT INFORMATION
  Report Type: Spontaneous
  Country: FR (occurrence: FR)
  Receive Date: 20160215
  Receipt Date: 20160310
  Transmission Date: 20160526
  Serious: Yes (Other)
  Sender: FDA-Public Use
  Company Number: FR-ROCHE-1711069

PATIENT
  Age: 83 Year
  Sex: Female

DRUGS (1)
  1. LUCENTIS [Suspect]
     Active Substance: RANIBIZUMAB
     Indication: VENOUS OCCLUSION
     Dosage: SINGLE DOSE
     Route: 050
     Dates: start: 20160204, end: 20160204

REACTIONS (2)
  - Visual acuity reduced [Not Recovered/Not Resolved]
  - Retinal vein occlusion [Recovering/Resolving]

NARRATIVE: CASE EVENT DATE: 20160205
